FAERS Safety Report 8519075-3 (Version None)
Quarter: 2012Q3

REPORT INFORMATION
  Report Type: 
  Country: None (occurrence: None)
  Receive Date: 20120718
  Receipt Date: 20120712
  Transmission Date: 20120928
  Serious: Yes (Hospitalization, Other)
  Sender: FDA-Public Use
  Company Number: US-PFIZER INC-2012168272

PATIENT
  Age: 59 Year
  Sex: Female

DRUGS (4)
  1. CYTARABINE [Suspect]
     Indication: ACUTE MYELOID LEUKAEMIA
     Dosage: UNK
     Route: 042
     Dates: start: 20120211
  2. CYTARABINE [Suspect]
     Dosage: 1920 MG, CYCLIC
     Route: 042
     Dates: start: 20120516, end: 20120516
  3. SPRYCEL [Suspect]
     Dosage: 600 MG, CYCLIC
     Route: 048
     Dates: start: 20120516, end: 20120526
  4. SPRYCEL [Suspect]
     Indication: ACUTE MYELOID LEUKAEMIA
     Dosage: UNK
     Route: 048
     Dates: start: 20120211

REACTIONS (5)
  - NEUTROPHIL COUNT DECREASED [None]
  - PLATELET COUNT DECREASED [None]
  - FEBRILE NEUTROPENIA [None]
  - UPPER GASTROINTESTINAL HAEMORRHAGE [None]
  - RESPIRATORY FAILURE [None]
